FAERS Safety Report 19913680 (Version 2)
Quarter: 2022Q1

REPORT INFORMATION
  Report Type: Spontaneous
  Country: US (occurrence: US)
  Receive Date: 20211004
  Receipt Date: 20220213
  Transmission Date: 20220423
  Serious: No
  Sender: FDA-Public Use
  Company Number: US-BIOGEN-2021BI01054605

PATIENT
  Sex: Female

DRUGS (2)
  1. VUMERITY [Suspect]
     Active Substance: DIROXIMEL FUMARATE
     Indication: Multiple sclerosis
     Dosage: STARTING DOSE
     Route: 065
     Dates: start: 20210816, end: 20210823
  2. VUMERITY [Suspect]
     Active Substance: DIROXIMEL FUMARATE
     Dosage: MAINTENANCE DOSE
     Route: 065
     Dates: start: 20210816, end: 20210823

REACTIONS (4)
  - Pyrexia [Unknown]
  - Abdominal discomfort [Unknown]
  - Flushing [Unknown]
  - Heart rate increased [Unknown]

NARRATIVE: CASE EVENT DATE: 20210101
